FAERS Safety Report 20005971 (Version 4)
Quarter: 2023Q1

REPORT INFORMATION
  Report Type: Spontaneous
  Country: JP (occurrence: None)
  Receive Date: 20211028
  Receipt Date: 20230327
  Transmission Date: 20230417
  Serious: Yes (Life-Threatening, Other)
  Sender: FDA-Public Use
  Company Number: 2021A783197

PATIENT
  Age: 77 Year
  Sex: Male

DRUGS (8)
  1. IMFINZI [Suspect]
     Active Substance: DURVALUMAB
     Indication: Small cell lung cancer
     Dosage: DOSE UNKNOWN
     Route: 041
  2. IMFINZI [Suspect]
     Active Substance: DURVALUMAB
     Indication: Small cell lung cancer
     Dosage: DOSE UNKNOWN
     Route: 041
  3. IMFINZI [Suspect]
     Active Substance: DURVALUMAB
     Indication: Small cell lung cancer
     Dosage: DOSE UNKNOWN
     Route: 041
  4. CARBOPLATIN [Concomitant]
     Active Substance: CARBOPLATIN
     Indication: Small cell lung cancer
     Dosage: DOSE UNKNOWN
  5. CARBOPLATIN [Concomitant]
     Active Substance: CARBOPLATIN
     Indication: Small cell lung cancer
     Dosage: DOSE UNKNOWN
  6. ETOPOSIDE [Concomitant]
     Active Substance: ETOPOSIDE
     Indication: Small cell lung cancer
     Dosage: DOSE UNKNOWN, ON DAY 1, 2, AND 3 OF EACH CYCLE
  7. ETOPOSIDE [Concomitant]
     Active Substance: ETOPOSIDE
     Indication: Small cell lung cancer
     Dosage: DOSE UNKNOWN, ON DAY 1, 2, AND 3 OF EACH CYCLE, 20% DOSE REDUCTION
  8. ETOPOSIDE [Concomitant]
     Active Substance: ETOPOSIDE
     Indication: Small cell lung cancer
     Dosage: DOSE UNKNOWN, ON DAY 1, 2, AND 3 OF EACH CYCLE, 20% DOSE REDUCTION

REACTIONS (7)
  - Neutrophil count decreased [Unknown]
  - Febrile neutropenia [Unknown]
  - Myelosuppression [Unknown]
  - Hypophysitis [Unknown]
  - Rash [Unknown]
  - Renal impairment [Unknown]
  - Gastrointestinal toxicity [Unknown]
